FAERS Safety Report 11335463 (Version 2)
Quarter: 2015Q3

REPORT INFORMATION
  Report Type: Spontaneous
  Country: CZ (occurrence: CZ)
  Receive Date: 20150804
  Receipt Date: 20150814
  Transmission Date: 20151125
  Serious: Yes (Other)
  Sender: FDA-Public Use
  Company Number: CZ-JNJFOC-20150720601

PATIENT
  Age: 74 Year
  Sex: Female

DRUGS (1)
  1. INVOKANA [Suspect]
     Active Substance: CANAGLIFLOZIN
     Indication: TYPE 2 DIABETES MELLITUS
     Route: 048
     Dates: end: 20150725

REACTIONS (6)
  - Musculoskeletal stiffness [Recovered/Resolved]
  - Hyperhidrosis [Unknown]
  - Muscle spasms [Recovered/Resolved]
  - Headache [Recovered/Resolved]
  - Vulvovaginal mycotic infection [Recovering/Resolving]
  - Urinary retention [Recovered/Resolved]

NARRATIVE: CASE EVENT DATE: 201507
